FAERS Safety Report 10727773 (Version 1)
Quarter: 2015Q1

REPORT INFORMATION
  Report Type: Spontaneous
  Country: GB (occurrence: GB)
  Receive Date: 20150121
  Receipt Date: 20150121
  Transmission Date: 20150721
  Serious: Yes (Other)
  Sender: FDA-Public Use
  Company Number: GB-GLAXOSMITHKLINE-GB2015GSK006506

PATIENT
  Age: 36 Year
  Sex: Female

DRUGS (2)
  1. VOTRIENT [Suspect]
     Active Substance: PAZOPANIB HYDROCHLORIDE
     Dosage: 600 MG, QD
     Dates: start: 201312, end: 201410
  2. VOTRIENT [Suspect]
     Active Substance: PAZOPANIB HYDROCHLORIDE
     Indication: SOFT TISSUE SARCOMA
     Dosage: 800 MG, QD
     Dates: start: 201309

REACTIONS (8)
  - Thoracic cavity drainage [Unknown]
  - Diarrhoea [Unknown]
  - Pleural effusion [Unknown]
  - Palliative care [Unknown]
  - Oral pain [Unknown]
  - Disease progression [Unknown]
  - Toxicity to various agents [Unknown]
  - General physical health deterioration [Unknown]
